FAERS Safety Report 8133623-7 (Version None)
Quarter: 2012Q1

REPORT INFORMATION
  Report Type: 
  Country: None (occurrence: None)
  Receive Date: 20120213
  Receipt Date: 20120127
  Transmission Date: 20120608
  Serious: Yes (Hospitalization)
  Sender: FDA-Public Use
  Company Number: DE-ROCHE-1035379

PATIENT
  Sex: Male
  Weight: 86 kg

DRUGS (6)
  1. OXALIPLATIN [Suspect]
     Indication: RECTAL CANCER
     Route: 042
     Dates: start: 20100913
  2. THYROXIN [Concomitant]
     Indication: HYPOTHYROIDISM
     Route: 048
  3. RAMIPRIL [Concomitant]
     Indication: HYPERTENSION
     Route: 048
  4. XELODA [Suspect]
     Indication: RECTAL CANCER
     Route: 048
     Dates: start: 20100916
  5. METOCLOPRAMIDE [Concomitant]
     Route: 048
  6. ACETAMINOPHEN [Concomitant]

REACTIONS (2)
  - ANAPHYLACTIC REACTION [None]
  - ILL-DEFINED DISORDER [None]
